FAERS Safety Report 4384721-5 (Version None)
Quarter: 2004Q2

REPORT INFORMATION
  Report Type: 
  Country: None (occurrence: None)
  Receive Date: 20040621
  Receipt Date: 20040608
  Transmission Date: 20050107
  Serious: Yes (Congenital Anomaly)
  Sender: FDA-Public Use
  Company Number: 2004038887

PATIENT
  Age: 1 Day
  Sex: 0

DRUGS (1)
  1. FLUCONAZOLE [Suspect]
     Indication: ILL-DEFINED DISORDER
     Dosage: 150 MG (150 MG, 1 IN 1 D),

REACTIONS (3)
  - DRUG EXPOSURE DURING PREGNANCY [None]
  - FINGER HYPOPLASIA [None]
  - SYNDACTYLY [None]
